FAERS Safety Report 9909033 (Version 1)
Quarter: 2014Q1

REPORT INFORMATION
  Report Type: Spontaneous
  Country: TW (occurrence: None)
  Receive Date: 20140212
  Receipt Date: 20140212
  Transmission Date: 20141002
  Serious: Yes (Death)
  Sender: FDA-Public Use
  Company Number: 2172887

PATIENT
  Age: 80 Year
  Sex: Male
  Weight: 59.4 kg

DRUGS (9)
  1. CALCIUM FOLINATE [Suspect]
     Indication: COLON CANCER METASTATIC
     Route: 041
     Dates: start: 20120605, end: 20120607
  2. CALCIUM FOLINATE [Suspect]
     Indication: METASTASES TO PERITONEUM
     Route: 041
     Dates: start: 20120605, end: 20120607
  3. IRINOTECAN HYDROCHLORIDE [Suspect]
     Indication: COLON CANCER METASTATIC
     Route: 041
     Dates: start: 20120605, end: 20120607
  4. IRINOTECAN HYDROCHLORIDE [Suspect]
     Indication: METASTASES TO PERITONEUM
     Route: 041
     Dates: start: 20120605, end: 20120607
  5. FLUOROURACIL [Suspect]
     Indication: COLON CANCER METASTATIC
     Route: 041
     Dates: start: 20120605, end: 20120607
  6. FLUOROURACIL [Suspect]
     Indication: METASTASES TO PERITONEUM
     Route: 041
     Dates: start: 20120605, end: 20120607
  7. BEVACIZUMAB [Suspect]
     Indication: COLON CANCER METASTATIC
  8. BEVACIZUMAB [Suspect]
     Indication: COLON CANCER METASTATIC
  9. BEVACIZUMAB [Suspect]
     Indication: METASTASES TO PERITONEUM

REACTIONS (14)
  - Tumour lysis syndrome [None]
  - Depressed level of consciousness [None]
  - Respiratory failure [None]
  - Hypotension [None]
  - Nausea [None]
  - Decreased appetite [None]
  - Carcinoembryonic antigen increased [None]
  - Carbohydrate antigen 19-9 increased [None]
  - Haematemesis [None]
  - Melaena [None]
  - White blood cell count increased [None]
  - Metabolic acidosis [None]
  - Refusal of treatment by relative [None]
  - Renal failure [None]
